FAERS Safety Report 20694834 (Version 1)
Quarter: 2022Q2

REPORT INFORMATION
  Report Type: Spontaneous
  Country: IE (occurrence: IE)
  Receive Date: 20220411
  Receipt Date: 20220411
  Transmission Date: 20220721
  Serious: Yes (Other)
  Sender: FDA-Public Use
  Company Number: IE-MYLANLABS-2022M1025897

PATIENT
  Age: 16 Year
  Sex: Male

DRUGS (2)
  1. CYSTAGON [Suspect]
     Active Substance: CYSTEAMINE BITARTRATE
     Indication: Cystinosis
     Dosage: UNK
     Route: 065
  2. PROCYSBI [Concomitant]
     Active Substance: CYSTEAMINE BITARTRATE
     Dosage: UNK

REACTIONS (1)
  - Reactive angioendotheliomatosis [Unknown]
